FAERS Safety Report 5377122-4 (Version None)
Quarter: 2007Q2

REPORT INFORMATION
  Report Type: 
  Country: None (occurrence: None)
  Receive Date: 20070629
  Receipt Date: 20070629
  Transmission Date: 20071010
  Serious: Yes (Other)
  Sender: FDA-Public Use
  Company Number: None

PATIENT
  Age: 48 Year
  Sex: Male
  Weight: 68.0396 kg

DRUGS (1)
  1. CENTRUM MULTI VITAMIN/MINERAL WYTHE PHARNA -CHINA- [Suspect]
     Dosage: 1 TABLET DAILY PO
     Route: 048
     Dates: start: 20070501, end: 20070624

REACTIONS (3)
  - HEADACHE [None]
  - NAUSEA [None]
  - SOMNOLENCE [None]
